FAERS Safety Report 4390513-3 (Version None)
Quarter: 2004Q2

REPORT INFORMATION
  Report Type: 
  Country: None (occurrence: None)
  Receive Date: 20040630
  Receipt Date: 20040618
  Transmission Date: 20050107
  Serious: Yes (Death, Hospitalization)
  Sender: FDA-Public Use
  Company Number: US-JNJFOC-20040405716

PATIENT
  Age: 63 Year
  Sex: Male

DRUGS (2)
  1. DURAGESIC [Suspect]
     Indication: PAIN
     Dosage: SEE IMAGE
     Route: 062
     Dates: start: 20040407, end: 20040422
  2. DURAGESIC [Suspect]
     Indication: PAIN
     Dosage: SEE IMAGE
     Route: 062
     Dates: start: 20040422

REACTIONS (6)
  - ARTHRALGIA [None]
  - CHRONIC OBSTRUCTIVE AIRWAYS DISEASE [None]
  - CONFUSIONAL STATE [None]
  - MEDICATION ERROR [None]
  - METASTASES TO BONE [None]
  - NON-SMALL CELL LUNG CANCER METASTATIC [None]
